FAERS Safety Report 25133599 (Version 2)
Quarter: 2025Q2

REPORT INFORMATION
  Report Type: Spontaneous
  Country: US (occurrence: US)
  Receive Date: 20250328
  Receipt Date: 20250419
  Transmission Date: 20250717
  Serious: Yes (Death, Other)
  Sender: ACCORD
  Company Number: US-MLMSERVICE-20250313-PI439718-00077-13

PATIENT
  Age: 66 Year
  Sex: Male
  Weight: 96.1 kg

DRUGS (6)
  1. CAPECITABINE [Suspect]
     Active Substance: CAPECITABINE
     Indication: Actinic keratosis
     Dosage: 500 MG AM/1000 MG PM PO X 2 CYCLES, TWO CYCLES
     Route: 048
     Dates: start: 20181227, end: 20190224
  2. MYCOPHENOLATE MOFETIL [Suspect]
     Active Substance: MYCOPHENOLATE MOFETIL
     Indication: Immunosuppressant drug therapy
     Dosage: 7 YEARS, 1000 MG BID PO FOR 5 YEARS
     Route: 048
  3. TACROLIMUS [Suspect]
     Active Substance: TACROLIMUS
     Indication: Immunosuppressant drug therapy
     Dosage: 1MG AM/1.5 MG PM, CONTINUED FROM TRANSPLANT TO DEATH
     Route: 048
  4. PREDNISONE [Suspect]
     Active Substance: PREDNISONE
     Indication: Immunosuppressant drug therapy
     Dosage: 7 YEARS CONTINUED FROM TRANSPLANT TO DEATH
     Route: 048
  5. MYCOPHENOLATE MOFETIL [Suspect]
     Active Substance: MYCOPHENOLATE MOFETIL
     Indication: Immunosuppressant drug therapy
     Dosage: 7 YEARS, 1000 MG BID PO FOR 5 YEARS
     Route: 048
  6. CAPECITABINE [Suspect]
     Active Substance: CAPECITABINE
     Indication: Squamous cell carcinoma of skin
     Dosage: 500 MG AM/1000 MG PM PO X 2 CYCLES, TWO CYCLES
     Route: 048
     Dates: start: 20181227, end: 20190224

REACTIONS (5)
  - Squamous cell carcinoma of skin [Unknown]
  - Condition aggravated [Unknown]
  - Paradoxical drug reaction [Unknown]
  - Off label use [Unknown]
  - Metastatic squamous cell carcinoma [Fatal]
